FAERS Safety Report 11234563 (Version 3)
Quarter: 2015Q3

REPORT INFORMATION
  Report Type: Spontaneous
  Country: US (occurrence: US)
  Receive Date: 20150702
  Receipt Date: 20150720
  Transmission Date: 20151125
  Serious: Yes (Other)
  Sender: FDA-Public Use
  Company Number: US-PFIZER INC-2015212869

PATIENT
  Age: 3 Year
  Sex: Female
  Weight: 16 kg

DRUGS (1)
  1. DIMETAPP COLD AND ALLERGY [Suspect]
     Active Substance: BROMPHENIRAMINE MALEATE\PHENYLEPHRINE HYDROCHLORIDE
     Dosage: 180 ML, SINGLE

REACTIONS (8)
  - Accidental exposure to product by child [Unknown]
  - Product quality issue [Unknown]
  - Nasopharyngitis [Unknown]
  - Asthma [Unknown]
  - Hyperventilation [Not Recovered/Not Resolved]
  - Vomiting [Recovered/Resolved]
  - Urticaria [Unknown]
  - Cough [Not Recovered/Not Resolved]
